FAERS Safety Report 4331301-3 (Version None)
Quarter: 2004Q1

REPORT INFORMATION
  Report Type: 
  Country: None (occurrence: None)
  Receive Date: 20040329
  Receipt Date: 20040317
  Transmission Date: 20041129
  Serious: Yes (Other)
  Sender: FDA-Public Use
  Company Number: HQWYE367426FEB04

PATIENT
  Age: 14 Year
  Sex: Female
  Weight: 49.94 kg

DRUGS (1)
  1. EFFEXOR XR [Suspect]
     Indication: DEPRESSION
     Dosage: 150 MG 1X PER 1 DAY, ORAL
     Route: 048
     Dates: start: 20011212

REACTIONS (9)
  - CHEST DISCOMFORT [None]
  - CRYING [None]
  - DECREASED APPETITE [None]
  - DIZZINESS [None]
  - DRUG INEFFECTIVE [None]
  - GASTROOESOPHAGEAL REFLUX DISEASE [None]
  - HEART RATE INCREASED [None]
  - PALLOR [None]
  - WEIGHT DECREASED [None]
